FAERS Safety Report 25842508 (Version 2)
Quarter: 2025Q3

REPORT INFORMATION
  Report Type: Spontaneous
  Country: US (occurrence: US)
  Receive Date: 20250924
  Receipt Date: 20250930
  Transmission Date: 20251020
  Serious: No
  Sender: BIOGEN
  Company Number: US-BIOGEN-2025BI01316186

PATIENT
  Sex: Female

DRUGS (1)
  1. VUMERITY [Suspect]
     Active Substance: DIROXIMEL FUMARATE
     Indication: Multiple sclerosis
     Route: 050
     Dates: start: 20241115

REACTIONS (5)
  - Depression [Unknown]
  - Visual impairment [Unknown]
  - Intervertebral disc protrusion [Unknown]
  - Radiculopathy [Unknown]
  - Central nervous system lesion [Unknown]
